FAERS Safety Report 21217077 (Version 1)
Quarter: 2022Q3

REPORT INFORMATION
  Report Type: Spontaneous
  Country: US (occurrence: None)
  Receive Date: 20220815
  Receipt Date: 20220815
  Transmission Date: 20221027
  Serious: No
  Sender: FDA-Public Use
  Company Number: None

PATIENT
  Sex: Male

DRUGS (1)
  1. SUNITINIB MALATE [Suspect]
     Active Substance: SUNITINIB MALATE
     Indication: Renal cancer
     Dosage: 50MG DAILY ORAL?
     Route: 048
     Dates: start: 202205

REACTIONS (5)
  - Oropharyngeal pain [None]
  - Weight decreased [None]
  - Fatigue [None]
  - Mouth ulceration [None]
  - Pharyngeal ulceration [None]
